FAERS Safety Report 19568751 (Version 3)
Quarter: 2021Q3

REPORT INFORMATION
  Report Type: Report from Study
  Country: PE (occurrence: PE)
  Receive Date: 20210715
  Receipt Date: 20210903
  Transmission Date: 20211014
  Serious: Yes (Death, Hospitalization, Other)
  Sender: FDA-Public Use
  Company Number: PE-SEATTLE GENETICS-2021SGN03699

PATIENT
  Sex: Female

DRUGS (1)
  1. BRENTUXIMAB VEDOTIN [Suspect]
     Active Substance: BRENTUXIMAB VEDOTIN
     Indication: CUTANEOUS T-CELL LYMPHOMA
     Dosage: 84 MILLIGRAM
     Route: 042
     Dates: start: 20210623

REACTIONS (5)
  - Adverse event [Fatal]
  - Localised infection [Unknown]
  - Treatment delayed [Unknown]
  - Pyrexia [Unknown]
  - Thrombosis [Unknown]
